FAERS Safety Report 25925788 (Version 1)
Quarter: 2025Q4

REPORT INFORMATION
  Report Type: Spontaneous
  Country: EU (occurrence: EU)
  Receive Date: 20251015
  Receipt Date: 20251015
  Transmission Date: 20260118
  Serious: Yes (Other)
  Sender: BRACCO
  Company Number: None

PATIENT
  Age: 61 Year
  Sex: Female

DRUGS (4)
  1. IOMERON [Suspect]
     Active Substance: IOMEPROL
     Indication: Scan with contrast
     Dosage: 100 ML, SINGLE
     Route: 042
     Dates: start: 20250707, end: 20250707
  2. CARTEOLOL HYDROCHLORIDE [Concomitant]
     Active Substance: CARTEOLOL HYDROCHLORIDE
     Indication: Glaucoma
     Dosage: 1 DROP (1/12 MILLILITRE), QD
     Dates: start: 20230213
  3. Blissel [Concomitant]
     Dosage: 1 DF, QD
     Route: 067
     Dates: start: 20230421
  4. LATANOPROST\TIMOLOL MALEATE [Concomitant]
     Active Substance: LATANOPROST\TIMOLOL MALEATE
     Indication: Glaucoma
     Dosage: 1 DROP (1/12 MILLILITRE), QD
     Dates: start: 20211018

REACTIONS (2)
  - Contrast media reaction [Recovered/Resolved]
  - Toxic skin eruption [Recovered/Resolved]

NARRATIVE: CASE EVENT DATE: 20250707
